FAERS Safety Report 5563322-7 (Version None)
Quarter: 2007Q4

REPORT INFORMATION
  Report Type: 
  Country: None (occurrence: None)
  Receive Date: 20071217
  Receipt Date: 20071204
  Transmission Date: 20080405
  Serious: Yes (Hospitalization)
  Sender: FDA-Public Use
  Company Number: SK-AMGEN-US256541

PATIENT
  Age: 13 Year
  Sex: Female

DRUGS (2)
  1. ENBREL [Suspect]
     Indication: JUVENILE ARTHRITIS
     Dosage: UNKNOWN DOSE; LYOPHILIZED
     Route: 058
     Dates: start: 20060823, end: 20071027
  2. METHYLPREDNISOLONE [Concomitant]
     Dosage: 2 MG EVERY OTHER DAY
     Route: 065

REACTIONS (2)
  - HENOCH-SCHONLEIN PURPURA [None]
  - TONSILLITIS [None]
